FAERS Safety Report 7837259-4 (Version None)
Quarter: 2011Q4

REPORT INFORMATION
  Report Type: 
  Country: None (occurrence: None)
  Receive Date: 20111024
  Receipt Date: 20110318
  Transmission Date: 20120403
  Serious: No
  Sender: FDA-Public Use
  Company Number: US-ABBOTT-11P-163-0713063-00

PATIENT
  Sex: Female

DRUGS (3)
  1. LUPRON DEPOT [Suspect]
     Indication: ENDOMETRIOSIS
     Dates: start: 20101201
  2. LUPRON DEPOT [Suspect]
     Indication: OVARIAN CYST
  3. LUPRON DEPOT [Suspect]
     Indication: MENORRHAGIA

REACTIONS (3)
  - FOOT FRACTURE [None]
  - HOT FLUSH [None]
  - PAIN IN EXTREMITY [None]
